FAERS Safety Report 16570205 (Version 1)
Quarter: 2019Q3

REPORT INFORMATION
  Report Type: Spontaneous
  Country: JP (occurrence: JP)
  Receive Date: 20190715
  Receipt Date: 20190715
  Transmission Date: 20191004
  Serious: Yes (Hospitalization)
  Sender: FDA-Public Use
  Company Number: JP-UNICHEM PHARMACEUTICALS (USA) INC-UCM201907-000245

PATIENT
  Age: 66 Year
  Sex: Male
  Weight: 62 kg

DRUGS (7)
  1. PAROXETINE. [Concomitant]
     Active Substance: PAROXETINE
     Indication: DEPRESSION
  2. TIAPRIDE [Concomitant]
     Active Substance: TIAPRIDE
     Indication: DEPRESSION
  3. SUVOREXANT. [Concomitant]
     Active Substance: SUVOREXANT
     Indication: DEPRESSION
  4. QUETIAPINE. [Suspect]
     Active Substance: QUETIAPINE
     Indication: DELIRIUM
     Dates: start: 201707
  5. MIANSERIN [Concomitant]
     Active Substance: MIANSERIN
     Indication: DEPRESSION
  6. QUETIAPINE. [Suspect]
     Active Substance: QUETIAPINE
     Dates: start: 201708
  7. RAMELTEON [Concomitant]
     Active Substance: RAMELTEON
     Indication: DEPRESSION

REACTIONS (4)
  - Diabetic ketoacidosis [Unknown]
  - Gastrointestinal necrosis [Unknown]
  - Diabetes mellitus [Unknown]
  - Intestinal ischaemia [Unknown]
